FAERS Safety Report 8579100-0 (Version None)
Quarter: 2012Q3

REPORT INFORMATION
  Report Type: 
  Country: None (occurrence: None)
  Receive Date: 20120808
  Receipt Date: 20120806
  Transmission Date: 20120928
  Serious: Yes (Death)
  Sender: FDA-Public Use
  Company Number: US-PFIZER INC-2012190730

PATIENT
  Age: 67 Year
  Sex: Male

DRUGS (1)
  1. RAPAMUNE [Suspect]

REACTIONS (2)
  - DISEASE PROGRESSION [None]
  - BONE MARROW DISORDER [None]
